FAERS Safety Report 22813104 (Version 3)
Quarter: 2024Q1

REPORT INFORMATION
  Report Type: Other
  Country: PL (occurrence: PL)
  Receive Date: 20230811
  Receipt Date: 20240323
  Transmission Date: 20240410
  Serious: Yes (Other)
  Sender: FDA-Public Use
  Company Number: PL-ROCHE-3402711

PATIENT
  Age: 49 Year
  Sex: Female

DRUGS (8)
  1. RITUXIMAB [Suspect]
     Active Substance: RITUXIMAB
     Indication: Immunosuppression
     Dosage: 1 PULSE OF 600 MG
     Route: 042
  2. RITUXIMAB [Suspect]
     Active Substance: RITUXIMAB
     Indication: Cutaneous vasculitis
  3. CYCLOPHOSPHAMIDE [Suspect]
     Active Substance: CYCLOPHOSPHAMIDE
     Indication: Immunosuppression
     Dosage: 2 PULSES OF 600 MG
     Route: 042
  4. PREDNISONE [Concomitant]
     Active Substance: PREDNISONE
     Route: 048
  5. SEVELAMER [Concomitant]
     Active Substance: SEVELAMER
  6. METHYLPREDNISOLONE [Concomitant]
     Active Substance: METHYLPREDNISOLONE
  7. HEPARIN [Concomitant]
     Active Substance: HEPARIN SODIUM
  8. CINACALCET [Concomitant]
     Active Substance: CINACALCET

REACTIONS (2)
  - Off label use [Unknown]
  - Calciphylaxis [Recovering/Resolving]
